FAERS Safety Report 23624188 (Version 1)
Quarter: 2024Q1

REPORT INFORMATION
  Report Type: Spontaneous
  Country: DE (occurrence: DE)
  Receive Date: 20240312
  Receipt Date: 20240312
  Transmission Date: 20240410
  Serious: Yes (Hospitalization)
  Sender: FDA-Public Use
  Company Number: DE-JNJFOC-20240230931

PATIENT
  Sex: Female

DRUGS (5)
  1. DEXAMETHASONE [Suspect]
     Active Substance: DEXAMETHASONE
     Indication: Product used for unknown indication
     Dosage: 20 MG; 30 DAYS AFTER THERAPY:14-FEB-2024
     Route: 042
     Dates: start: 20240110
  2. DARZALEX [Suspect]
     Active Substance: DARATUMUMAB
     Indication: Product used for unknown indication
     Dosage: 16 MG/KG;30 DAYS AFTER THERAPY: 09-FEB-2024
     Route: 042
     Dates: start: 20240110
  3. LENALIDOMIDE [Suspect]
     Active Substance: LENALIDOMIDE
     Indication: Product used for unknown indication
     Dosage: 10 MG; LAST DATE PRIOR TO SAE: 15-JAN-202430 DAYS AFTER THERAPY:14-FEB-2024
     Route: 048
     Dates: start: 20240110
  4. THALIDOMIDE [Suspect]
     Active Substance: THALIDOMIDE
     Indication: Product used for unknown indication
     Dosage: 100 MG ; LAST DATE PRIOR TO SAE: 15-JAN-202430 DAYS AFTER THERAPY:14-FEB-2024
     Route: 048
     Dates: start: 20240110
  5. PEMBROLIZUMAB [Concomitant]
     Active Substance: PEMBROLIZUMAB
     Indication: Product used for unknown indication
     Dosage: UNK
     Route: 065

REACTIONS (1)
  - Malignant melanoma [Recovered/Resolved]

NARRATIVE: CASE EVENT DATE: 20240118
